FAERS Safety Report 8299030-1 (Version None)
Quarter: 2012Q2

REPORT INFORMATION
  Report Type: 
  Country: None (occurrence: None)
  Receive Date: 20120419
  Receipt Date: 20120416
  Transmission Date: 20120825
  Serious: Yes (Hospitalization)
  Sender: FDA-Public Use
  Company Number: US-PFIZER INC-2012094303

PATIENT
  Sex: Male
  Weight: 121.54 kg

DRUGS (7)
  1. PRILOSEC [Concomitant]
     Dosage: UNK
  2. CELEBREX [Suspect]
     Indication: PAIN
     Dosage: 200 MG, 3X/DAY
     Route: 048
     Dates: start: 20100101, end: 20120101
  3. CELEBREX [Suspect]
     Indication: INTERVERTEBRAL DISC PROTRUSION
     Dosage: 200 MG, 2X/DAY
     Route: 048
     Dates: start: 20120101
  4. GLUCOSAMINE [Concomitant]
     Dosage: UNK
  5. CLONAZEPAM [Concomitant]
     Dosage: UNK, AS NEEDED
  6. ZOCOR [Concomitant]
     Dosage: UNK
  7. SERTRALINE [Concomitant]
     Dosage: UNK

REACTIONS (7)
  - PAIN [None]
  - WEIGHT INCREASED [None]
  - FALL [None]
  - STRESS [None]
  - MUSCLE SPASMS [None]
  - INTERVERTEBRAL DISC PROTRUSION [None]
  - DRUG EFFECT DECREASED [None]
